FAERS Safety Report 7977309 (Version 2)
Quarter: 2014Q3

REPORT INFORMATION
  Report Type: Report from Study
  Country: US (occurrence: US)
  Receive Date: 20110607
  Receipt Date: 20140814
  Transmission Date: 20150326
  Serious: Yes (Other)
  Sender: FDA-Public Use
  Company Number: US-ASTRAZENECA-2010SE51479

PATIENT
  Age: 52 Year
  Sex: Female
  Weight: 63.5 kg

DRUGS (3)
  1. NEXIUM [Suspect]
     Active Substance: ESOMEPRAZOLE MAGNESIUM
     Indication: GASTROOESOPHAGEAL REFLUX DISEASE
     Route: 048
     Dates: start: 2004
  2. PRILOSEC [Suspect]
     Active Substance: OMEPRAZOLE MAGNESIUM
     Route: 048
  3. NEXIUM [Suspect]
     Active Substance: ESOMEPRAZOLE MAGNESIUM
     Indication: GASTROOESOPHAGEAL REFLUX DISEASE
     Route: 048
     Dates: start: 2004

REACTIONS (9)
  - Gastrooesophageal reflux disease [Unknown]
  - Tympanic membrane perforation [Unknown]
  - Weight increased [Unknown]
  - Drug ineffective [Unknown]
  - Aphonia [Unknown]
  - Malaise [Unknown]
  - Drug dose omission [Unknown]
  - Dyspepsia [Unknown]
  - Off label use [Not Recovered/Not Resolved]
